FAERS Safety Report 7574799-X (Version None)
Quarter: 2011Q2

REPORT INFORMATION
  Report Type: 
  Country: None (occurrence: None)
  Receive Date: 20110627
  Receipt Date: 20090416
  Transmission Date: 20111010
  Serious: Yes (Other)
  Sender: FDA-Public Use
  Company Number: US-BAYER-200918351NA

PATIENT
  Age: 73 Year
  Sex: Female
  Weight: 61 kg

DRUGS (13)
  1. PROPOFOL [Concomitant]
     Dosage: 200 MG, UNK
     Route: 042
     Dates: start: 20061211, end: 20061211
  2. MIDAZOLAM HCL [Concomitant]
     Dosage: UNK
     Route: 042
     Dates: start: 20061211, end: 20061211
  3. HYDROCORTISONE [Concomitant]
     Dosage: 100 MG, UNK
     Route: 042
     Dates: start: 20061211, end: 20061211
  4. ACETYLSALICYLIC ACID SRT [Concomitant]
     Dosage: 81 MG, UNK
     Route: 048
  5. TRASYLOL [Suspect]
     Indication: AORTIC VALVE REPLACEMENT
     Dosage: 1 ML
     Route: 042
     Dates: start: 20061211, end: 20061211
  6. GLUCOTROL [Concomitant]
     Dosage: 5 MG, UNK
     Route: 048
  7. FOSAMAX [Concomitant]
     Dosage: 70 MG ONCE WEEKLY
     Route: 048
  8. PROTAMINE SULFATE [Concomitant]
     Dosage: 300 MG
     Route: 042
     Dates: start: 20061211, end: 20061211
  9. FENTANYL [Concomitant]
     Dosage: 100 MCG
     Route: 042
     Dates: start: 20061211, end: 20061211
  10. TRASYLOL [Suspect]
     Indication: CORONARY ARTERY BYPASS
     Dosage: 400 ML LOADING DOSE
     Route: 042
     Dates: start: 20061211, end: 20061211
  11. VECURONIUM BROMIDE [Concomitant]
     Dosage: UNK
     Route: 042
     Dates: start: 20061211, end: 20061211
  12. CEFAZOLIN [Concomitant]
     Dosage: 1 G, UNK
     Route: 042
     Dates: start: 20061211, end: 20061211
  13. PHENYLEPHRINE HCL [Concomitant]
     Dosage: 90 MCG
     Route: 042
     Dates: start: 20061211, end: 20061211

REACTIONS (5)
  - RENAL FAILURE [None]
  - INJURY [None]
  - RENAL FAILURE ACUTE [None]
  - UNEVALUABLE EVENT [None]
  - PAIN [None]
